FAERS Safety Report 9486424 (Version 1)
Quarter: 2013Q3

REPORT INFORMATION
  Report Type: Spontaneous
  Country: US (occurrence: None)
  Receive Date: 20130827
  Receipt Date: 20130827
  Transmission Date: 20140515
  Serious: Yes (Hospitalization, Other)
  Sender: FDA-Public Use
  Company Number: 2013AP007497

PATIENT
  Age: 12 Year
  Sex: Female

DRUGS (1)
  1. LEVETIRACETAM [Suspect]
     Indication: EPILEPSY
     Dosage: UNK. UNK

REACTIONS (6)
  - Toxic encephalopathy [None]
  - Metabolic acidosis [None]
  - Renal failure acute [None]
  - Confusional state [None]
  - Respiratory distress [None]
  - Respiratory failure [None]
